FAERS Safety Report 6625545-5 (Version None)
Quarter: 2010Q1

REPORT INFORMATION
  Report Type: 
  Country: None (occurrence: None)
  Receive Date: 20100310
  Receipt Date: 20100301
  Transmission Date: 20100710
  Serious: Yes (Other)
  Sender: FDA-Public Use
  Company Number: US-CEPHALON-2010001177

PATIENT
  Age: 19 Month
  Sex: Female

DRUGS (1)
  1. AMRIX [Suspect]
     Route: 048

REACTIONS (3)
  - ACCIDENTAL DRUG INTAKE BY CHILD [None]
  - ACUTE DISSEMINATED ENCEPHALOMYELITIS [None]
  - DRUG TOXICITY [None]
